FAERS Safety Report 7179267-5 (Version None)
Quarter: 2010Q4

REPORT INFORMATION
  Report Type: 
  Country: None (occurrence: None)
  Receive Date: 20101221
  Receipt Date: 20101215
  Transmission Date: 20110411
  Serious: Yes (Death, Hospitalization)
  Sender: FDA-Public Use
  Company Number: US-CELGENEUS-163-21880-10121873

PATIENT
  Age: 82 Year
  Sex: Female

DRUGS (10)
  1. REVLIMID [Suspect]
     Indication: MULTIPLE MYELOMA
     Route: 048
     Dates: start: 20091128, end: 20091207
  2. DECADRON [Concomitant]
     Route: 065
  3. PRILOSEC [Concomitant]
     Route: 065
  4. AMLODIPINE [Concomitant]
     Route: 065
  5. SIMVASTATIN [Concomitant]
     Route: 065
  6. ATENOLOL [Concomitant]
     Route: 065
  7. ASPIRIN [Concomitant]
     Route: 065
  8. CALCIUM + VITAMIN D [Concomitant]
     Route: 065
  9. QVAR 40 [Concomitant]
     Route: 065
  10. COMBIVENT [Concomitant]
     Route: 065

REACTIONS (5)
  - BACK PAIN [None]
  - CHEST PAIN [None]
  - COUGH [None]
  - DEATH [None]
  - DYSPNOEA [None]
